FAERS Safety Report 14204781 (Version 1)
Quarter: 2017Q4

REPORT INFORMATION
  Report Type: Spontaneous
  Country: US (occurrence: US)
  Receive Date: 20171120
  Receipt Date: 20171120
  Transmission Date: 20180321
  Serious: No
  Sender: FDA-Public Use
  Company Number: US-GLAXOSMITHKLINE-US2017176394

PATIENT
  Age: 81 Year
  Sex: Female

DRUGS (20)
  1. NASONEX [Concomitant]
     Active Substance: MOMETASONE FUROATE
  2. FIBER [Concomitant]
     Active Substance: PSYLLIUM HUSK
  3. FUROSEMIDE. [Concomitant]
     Active Substance: FUROSEMIDE
  4. VITAMIN C [Concomitant]
     Active Substance: ASCORBIC ACID
  5. ADVAIR DISKUS [Suspect]
     Active Substance: FLUTICASONE PROPIONATE\SALMETEROL XINAFOATE
     Indication: RESPIRATORY DISORDER
     Dosage: 1 PUFF(S), BID
     Route: 055
     Dates: start: 20171115
  6. ZOFRAN [Concomitant]
     Active Substance: ONDANSETRON HYDROCHLORIDE
  7. PROPAFENONE. [Concomitant]
     Active Substance: PROPAFENONE
  8. COQ10 [Concomitant]
     Active Substance: UBIDECARENONE
  9. ASPIRIN. [Concomitant]
     Active Substance: ASPIRIN
  10. KEFLEX [Concomitant]
     Active Substance: CEPHALEXIN
  11. NEXIUM [Concomitant]
     Active Substance: ESOMEPRAZOLE MAGNESIUM
  12. DILTIAZEM. [Concomitant]
     Active Substance: DILTIAZEM
  13. GLUCOSAMINE [Concomitant]
     Active Substance: GLUCOSAMINE
  14. BENZONATATE. [Concomitant]
     Active Substance: BENZONATATE
  15. FISH OIL [Concomitant]
     Active Substance: FISH OIL
  16. LORATADINE. [Concomitant]
     Active Substance: LORATADINE
  17. METFORMIN [Concomitant]
     Active Substance: METFORMIN HYDROCHLORIDE
  18. ROPINIROLE. [Concomitant]
     Active Substance: ROPINIROLE
  19. ATORVASTATIN [Concomitant]
     Active Substance: ATORVASTATIN
  20. MECLIZINE [Concomitant]
     Active Substance: MECLIZINE HYDROCHLORIDE

REACTIONS (3)
  - Product use in unapproved indication [Unknown]
  - Heart rate increased [Not Recovered/Not Resolved]
  - Drug dose omission [Unknown]

NARRATIVE: CASE EVENT DATE: 20171115
